FAERS Safety Report 18609708 (Version 1)
Quarter: 2020Q4

REPORT INFORMATION
  Report Type: Spontaneous
  Country: DE (occurrence: DE)
  Receive Date: 20201214
  Receipt Date: 20201214
  Transmission Date: 20210114
  Serious: Yes (Other)
  Sender: FDA-Public Use
  Company Number: DE-SA-2020SA354956

PATIENT

DRUGS (1)
  1. ALEMTUZUMAB [Suspect]
     Active Substance: ALEMTUZUMAB
     Indication: MULTIPLE SCLEROSIS

REACTIONS (5)
  - Autoimmune anaemia [Unknown]
  - Multiple sclerosis [Recovering/Resolving]
  - Pancytopenia [Recovering/Resolving]
  - Immune thrombocytopenia [Recovering/Resolving]
  - Leukopenia [Recovering/Resolving]
